FAERS Safety Report 18342832 (Version 1)
Quarter: 2020Q4

REPORT INFORMATION
  Report Type: Spontaneous
  Country: US (occurrence: US)
  Receive Date: 20201002
  Receipt Date: 20201002
  Transmission Date: 20210113
  Serious: Yes (Death)
  Sender: FDA-Public Use
  Company Number: None

PATIENT
  Age: 86 Year
  Sex: Male

DRUGS (3)
  1. REMDESIVIR. [Suspect]
     Active Substance: REMDESIVIR
     Indication: COVID-19
     Route: 040
     Dates: start: 20200924, end: 20200928
  2. ENOXAPARIN 0.5 MG/KG SQ Q 12H [Concomitant]
     Dates: start: 20200924, end: 20200928
  3. METHYLPREDNISOLONE 50 MG Q 12 H [Concomitant]
     Dates: start: 20200924, end: 20200928

REACTIONS (2)
  - Pulseless electrical activity [None]
  - Cardiac arrest [None]

NARRATIVE: CASE EVENT DATE: 20200928
